FAERS Safety Report 12502507 (Version 2)
Quarter: 2017Q3

REPORT INFORMATION
  Report Type: Spontaneous
  Country: US (occurrence: US)
  Receive Date: 20160627
  Receipt Date: 20170817
  Transmission Date: 20171127
  Serious: Yes (Hospitalization)
  Sender: FDA-Public Use
  Company Number: US-LUNDBECK-DKLU2013738

PATIENT
  Age: 84 Year
  Sex: Male

DRUGS (2)
  1. NORTHERA [Suspect]
     Active Substance: DROXIDOPA
     Indication: ORTHOSTATIC TREMOR
     Dosage: SCHEDULE C
     Route: 048
     Dates: start: 201612
  2. NORTHERA [Suspect]
     Active Substance: DROXIDOPA
     Indication: TREMOR

REACTIONS (4)
  - Hypoaesthesia [Unknown]
  - Tremor [Unknown]
  - Gait inability [Unknown]
  - Paraesthesia [Unknown]

NARRATIVE: CASE EVENT DATE: 20170806
